FAERS Safety Report 15426978 (Version 1)
Quarter: 2018Q3

REPORT INFORMATION
  Report Type: Spontaneous
  Country: LB (occurrence: LB)
  Receive Date: 20180925
  Receipt Date: 20180925
  Transmission Date: 20181010
  Serious: Yes (Death)
  Sender: FDA-Public Use
  Company Number: LB-CELGENEUS-LBN-20180906466

PATIENT
  Sex: Male

DRUGS (2)
  1. POMALIDOMIDE [Suspect]
     Active Substance: POMALIDOMIDE
     Indication: OFF LABEL USE
  2. POMALIDOMIDE [Suspect]
     Active Substance: POMALIDOMIDE
     Indication: GLIOMA
     Route: 048
     Dates: start: 2018

REACTIONS (1)
  - Glioma [Fatal]
